FAERS Safety Report 10518560 (Version 2)
Quarter: 2014Q4

REPORT INFORMATION
  Report Type: Report from Study
  Country: DE (occurrence: DE)
  Receive Date: 20141015
  Receipt Date: 20141015
  Transmission Date: 20150528
  Serious: Yes (Hospitalization, Other)
  Sender: FDA-Public Use
  Company Number: DE-LEO PHARMA-221456

PATIENT
  Age: 62 Year
  Sex: Male
  Weight: 94 kg

DRUGS (14)
  1. NOVALGIN [Concomitant]
     Active Substance: METAMIZOLE SODIUM
     Indication: PRODUCT USED FOR UNKNOWN INDICATION
  2. STAPHYLEX [Concomitant]
     Active Substance: FLUCLOXACILLIN
     Indication: PRODUCT USED FOR UNKNOWN INDICATION
  3. FUROSEMIDE. [Concomitant]
     Active Substance: FUROSEMIDE
     Indication: HYPERTENSION
     Route: 048
  4. PICATO [Suspect]
     Active Substance: INGENOL MEBUTATE
     Indication: ACTINIC KERATOSIS
     Route: 061
     Dates: start: 20121023, end: 20121025
  5. LAVASEPT [Concomitant]
     Indication: PRODUCT USED FOR UNKNOWN INDICATION
  6. LAVASEPT [Concomitant]
     Indication: PRODUCT USED FOR UNKNOWN INDICATION
  7. ENALAPRIL [Concomitant]
     Active Substance: ENALAPRIL
     Indication: HYPERTENSION
     Route: 048
  8. IBUPROFEN. [Concomitant]
     Active Substance: IBUPROFEN
     Indication: PAIN
     Route: 048
  9. BLINDED IMP [Suspect]
     Active Substance: INVESTIGATIONAL PRODUCT
     Indication: ACTINIC KERATOSIS
     Route: 061
     Dates: start: 20121218, end: 20121220
  10. BLINDED IMP [Suspect]
     Active Substance: INVESTIGATIONAL PRODUCT
     Dates: start: 20121218, end: 20121220
  11. SIMVASTATIN. [Concomitant]
     Active Substance: SIMVASTATIN
     Indication: HYPERLIPIDAEMIA
     Route: 048
  12. VEHICLE [Suspect]
     Active Substance: INVESTIGATIONAL PRODUCT
     Indication: ACTINIC KERATOSIS
     Route: 061
     Dates: start: 20121218, end: 20121220
  13. METFORMIN [Concomitant]
     Active Substance: METFORMIN HYDROCHLORIDE
     Indication: DIABETES MELLITUS
     Route: 048
  14. AMLODIPIN [Concomitant]
     Active Substance: AMLODIPINE BESYLATE
     Indication: HYPERTENSION
     Route: 048

REACTIONS (3)
  - Carcinoma in situ [Recovered/Resolved]
  - Actinic keratosis [Recovered/Resolved]
  - Squamous cell carcinoma [Recovered/Resolved]

NARRATIVE: CASE EVENT DATE: 20130115
